FAERS Safety Report 21574556 (Version 2)
Quarter: 2022Q4

REPORT INFORMATION
  Report Type: Report from Study
  Country: US (occurrence: US)
  Receive Date: 20221109
  Receipt Date: 20221116
  Transmission Date: 20230113
  Serious: Yes (Death, Hospitalization, Other)
  Sender: FDA-Public Use
  Company Number: US-BRISTOL-MYERS SQUIBB COMPANY-2022-132788

PATIENT
  Age: 49 Year
  Sex: Female

DRUGS (1)
  1. ABECMA [Suspect]
     Active Substance: IDECABTAGENE VICLEUCEL
     Indication: Plasma cell myeloma refractory
     Dosage: FREQUENCY: ONCE, 1 INFUSION
     Route: 065
     Dates: start: 20221004

REACTIONS (8)
  - Death [Fatal]
  - Intestinal perforation [Unknown]
  - Abscess intestinal [Unknown]
  - Enterococcal infection [Unknown]
  - Haemophagocytic lymphohistiocytosis [Unknown]
  - Pancytopenia [Unknown]
  - Neutropenia [Unknown]
  - Immune effector cell-associated neurotoxicity syndrome [Unknown]

NARRATIVE: CASE EVENT DATE: 20220101
